FAERS Safety Report 18203364 (Version 1)
Quarter: 2020Q3

REPORT INFORMATION
  Report Type: Spontaneous
  Country: DE (occurrence: DE)
  Receive Date: 20200827
  Receipt Date: 20200827
  Transmission Date: 20201103
  Serious: Yes (Death)
  Sender: FDA-Public Use
  Company Number: DE-MYLANLABS-2020M1073184

PATIENT

DRUGS (4)
  1. INFLIXIMAB [Suspect]
     Active Substance: INFLIXIMAB
     Indication: DIARRHOEA
     Dosage: 5 MG/KG
  2. NIVOLUMAB [Suspect]
     Active Substance: NIVOLUMAB
     Dosage: SEVEN INFUSIONS OF NIVOLUMAB
  3. PREDNISOLONE. [Suspect]
     Active Substance: PREDNISOLONE
     Indication: DIARRHOEA
     Dosage: 1 MG/KG
     Route: 048
  4. NIVOLUMAB [Suspect]
     Active Substance: NIVOLUMAB
     Indication: CUTANEOUS T-CELL LYMPHOMA
     Dosage: FIVE INFUSIONS OF NIVOLUMAB (2 MG/KG)

REACTIONS (4)
  - Disease progression [Unknown]
  - Sepsis [Fatal]
  - Drug effective for unapproved indication [Unknown]
  - Off label use [Unknown]
